FAERS Safety Report 6140807-6 (Version None)
Quarter: 2009Q2

REPORT INFORMATION
  Report Type: 
  Country: None (occurrence: None)
  Receive Date: 20090402
  Receipt Date: 20080309
  Transmission Date: 20091009
  Serious: No
  Sender: FDA-Public Use
  Company Number: US-KINGPHARMUSA00001-K200800296

PATIENT
  Age: 84 Year
  Sex: Male

DRUGS (1)
  1. SKELAXIN [Suspect]

REACTIONS (4)
  - BACK PAIN [None]
  - BEDRIDDEN [None]
  - DIZZINESS [None]
  - PAIN IN EXTREMITY [None]
